FAERS Safety Report 5047322-1 (Version None)
Quarter: 2006Q3

REPORT INFORMATION
  Report Type: 
  Country: None (occurrence: None)
  Receive Date: 20060703
  Receipt Date: 20060619
  Transmission Date: 20061208
  Serious: Yes (Death)
  Sender: FDA-Public Use
  Company Number: 9039997-2006-00045

PATIENT

DRUGS (1)
  1. 5-AMINOLEVULINIC ACID [Suspect]
     Indication: MALIGNANT GLIOMA
     Dosage: 20 MG/KG, ONCE, ORAL
     Route: 048

REACTIONS (1)
  - DEATH [None]
